FAERS Safety Report 17675090 (Version 2)
Quarter: 2020Q2

REPORT INFORMATION
  Report Type: Spontaneous
  Country: US (occurrence: US)
  Receive Date: 20200416
  Receipt Date: 20200513
  Transmission Date: 20200714
  Serious: No
  Sender: FDA-Public Use
  Company Number: US-AMGEN-USASP2020060899

PATIENT
  Age: 69 Year
  Sex: Female
  Weight: 126 kg

DRUGS (1)
  1. REPATHA [Suspect]
     Active Substance: EVOLOCUMAB
     Indication: HYPERLIPIDAEMIA
     Dosage: 420 MILLIGRAM
     Route: 065
     Dates: start: 20191105

REACTIONS (3)
  - Wrong technique in device usage process [Unknown]
  - Needle issue [Unknown]
  - Incorrect dose administered by device [Unknown]

NARRATIVE: CASE EVENT DATE: 20200406
